FAERS Safety Report 4427312-X (Version None)
Quarter: 2004Q3

REPORT INFORMATION
  Report Type: 
  Country: None (occurrence: None)
  Receive Date: 20040812
  Receipt Date: 20040804
  Transmission Date: 20050211
  Serious: Yes (Hospitalization)
  Sender: FDA-Public Use
  Company Number: 200410419BFR

PATIENT
  Age: 69 Year
  Sex: Female

DRUGS (6)
  1. CIFLOX (CIPROFLOXACIN) [Suspect]
     Indication: ABSCESS LIMB
     Dosage: 1 G, TOTAL DAILY, ORAL
     Route: 048
     Dates: start: 20040625, end: 20040706
  2. CIFLOX (CIPROFLOXACIN) [Suspect]
     Indication: CELLULITIS
     Dosage: 1 G, TOTAL DAILY, ORAL
     Route: 048
     Dates: start: 20040625, end: 20040706
  3. DALACINE (CLINDAMYCIN HYDROCHLORIDE) [Suspect]
     Indication: ABSCESS LIMB
     Dosage: 1.8 G, TOTAL DAILY, ORAL
     Route: 048
     Dates: start: 20040625, end: 20040706
  4. DALACINE (CLINDAMYCIN HYDROCHLORIDE) [Suspect]
     Indication: CELLULITIS
     Dosage: 1.8 G, TOTAL DAILY, ORAL
     Route: 048
     Dates: start: 20040625, end: 20040706
  5. AXEPIM (CEFEPIME HYDROCHLORIDE) [Suspect]
     Indication: ABSCESS LIMB
     Dosage: 4 G, TOTAL DAILY, INTRAVENOUS
     Route: 042
     Dates: start: 20040625, end: 20040706
  6. AXEPIM (CEFEPIME HYDROCHLORIDE) [Suspect]
     Indication: CELLULITIS
     Dosage: 4 G, TOTAL DAILY, INTRAVENOUS
     Route: 042
     Dates: start: 20040625, end: 20040706

REACTIONS (5)
  - ACIDOSIS [None]
  - CONFUSIONAL STATE [None]
  - DEHYDRATION [None]
  - MARKEDLY REDUCED DIETARY INTAKE [None]
  - METABOLIC ACIDOSIS [None]
